FAERS Safety Report 8411775 (Version 9)
Quarter: 2017Q1

REPORT INFORMATION
  Report Type: Spontaneous
  Country: US (occurrence: US)
  Receive Date: 20120217
  Receipt Date: 20170220
  Transmission Date: 20170429
  Serious: Yes (Hospitalization, Disabling, Other)
  Sender: FDA-Public Use
  Company Number: US-009507513-1202USA02453

PATIENT
  Sex: Female
  Weight: 79.83 kg

DRUGS (8)
  1. BONIVA [Suspect]
     Active Substance: IBANDRONATE SODIUM
     Indication: OSTEOPOROSIS
     Dosage: UNK
     Route: 048
     Dates: start: 20080102, end: 20080401
  2. RECLAST [Suspect]
     Active Substance: ZOLEDRONIC ACID
     Indication: OSTEOPENIA
  3. BONIVA [Suspect]
     Active Substance: IBANDRONATE SODIUM
     Indication: OSTEOPENIA
  4. FOSAMAX [Suspect]
     Active Substance: ALENDRONATE SODIUM
     Indication: OSTEOPOROSIS
     Dosage: 10 MG, UNK
     Route: 048
     Dates: start: 19990301, end: 200201
  5. FOSAMAX [Suspect]
     Active Substance: ALENDRONATE SODIUM
     Dosage: 70 MG, UNK
     Route: 048
     Dates: start: 20010115, end: 20021220
  6. ACTONEL [Suspect]
     Active Substance: RISEDRONATE SODIUM
     Indication: OSTEOPOROSIS
     Dosage: 35 MG, UNK
     Route: 048
     Dates: start: 20021221, end: 20080101
  7. RECLAST [Suspect]
     Active Substance: ZOLEDRONIC ACID
     Indication: OSTEOPOROSIS
     Route: 065
  8. ACTONEL [Suspect]
     Active Substance: RISEDRONATE SODIUM
     Indication: OSTEOPENIA

REACTIONS (82)
  - Parathyroid disorder [Unknown]
  - Blood potassium decreased [Unknown]
  - Limb asymmetry [Unknown]
  - Functional gastrointestinal disorder [Unknown]
  - Migraine [Unknown]
  - Spinal column stenosis [Unknown]
  - Epicondylitis [Unknown]
  - Limb asymmetry [Unknown]
  - Urinary tract infection [Unknown]
  - Abdominal pain upper [Recovering/Resolving]
  - Muscle spasms [Unknown]
  - Pathological fracture [Unknown]
  - Fracture delayed union [Unknown]
  - Osteoarthritis [Unknown]
  - Cervical radiculopathy [Unknown]
  - Vertebral foraminal stenosis [Unknown]
  - Bladder disorder [Unknown]
  - Gait disturbance [Unknown]
  - Weight decreased [Unknown]
  - Alopecia [Unknown]
  - Chest pain [Unknown]
  - Neuropathy peripheral [Unknown]
  - Glaucoma [Unknown]
  - Neurogenic bladder [Not Recovered/Not Resolved]
  - Balance disorder [Unknown]
  - Thoracic vertebral fracture [Unknown]
  - Stiff person syndrome [Unknown]
  - Tinnitus [Unknown]
  - Temperature intolerance [Unknown]
  - Cystocele [Unknown]
  - Peroneal nerve palsy [Unknown]
  - Osteopenia [Unknown]
  - Fracture nonunion [Unknown]
  - Fall [Unknown]
  - Vertigo [Unknown]
  - Anaemia postoperative [Unknown]
  - Hyperparathyroidism [Unknown]
  - Osteoarthritis [Unknown]
  - Carpal tunnel syndrome [Unknown]
  - Pollakiuria [Unknown]
  - Diarrhoea [Unknown]
  - Gastrooesophageal reflux disease [Unknown]
  - Arthroscopy [Unknown]
  - Meniscus removal [Unknown]
  - Femur fracture [Recovering/Resolving]
  - Arthropathy [Unknown]
  - Anaemia [Unknown]
  - Necrosis [Unknown]
  - Benign bone neoplasm [Unknown]
  - Fall [Unknown]
  - Connective tissue disorder [Unknown]
  - Intervertebral disc degeneration [Unknown]
  - Osteopenia [Unknown]
  - Dyspnoea [Unknown]
  - Dry mouth [Unknown]
  - Nocturia [Unknown]
  - Joint swelling [Unknown]
  - Femur fracture [Unknown]
  - Device failure [Unknown]
  - Procedural hypotension [Unknown]
  - Lumbar radiculopathy [Unknown]
  - Foot deformity [Unknown]
  - Spinal osteoarthritis [Unknown]
  - Atrophic vulvovaginitis [Unknown]
  - Urinary retention [Unknown]
  - Arthralgia [Unknown]
  - Patellofemoral pain syndrome [Unknown]
  - Low turnover osteopathy [Unknown]
  - Sleep apnoea syndrome [Unknown]
  - Chondrocalcinosis pyrophosphate [Unknown]
  - Gastrointestinal haemorrhage [Unknown]
  - Arthropathy [Unknown]
  - Cataract [Unknown]
  - Dry eye [Unknown]
  - Groin pain [Unknown]
  - Osteomalacia [Unknown]
  - Diverticulum [Unknown]
  - Pain in extremity [Unknown]
  - Meniscus injury [Unknown]
  - Fall [Unknown]
  - Hand fracture [Unknown]
  - Exostosis [Unknown]

NARRATIVE: CASE EVENT DATE: 2000
